FAERS Safety Report 17766820 (Version 1)
Quarter: 2020Q2

REPORT INFORMATION
  Report Type: Spontaneous
  Country: FR (occurrence: FR)
  Receive Date: 20200511
  Receipt Date: 20200511
  Transmission Date: 20200714
  Serious: Yes (Hospitalization)
  Sender: FDA-Public Use
  Company Number: FR-PFIZER INC-2020181807

PATIENT
  Age: 83 Year
  Sex: Female

DRUGS (6)
  1. FLUCONAZOLE. [Suspect]
     Active Substance: FLUCONAZOLE
     Dosage: 100 MG, 1X/DAY
     Route: 048
     Dates: end: 20200216
  2. LAROXYL [Suspect]
     Active Substance: AMITRIPTYLINE HYDROCHLORIDE
     Dosage: 2 DF, 1X/DAY
     Route: 048
     Dates: start: 20200208, end: 20200217
  3. TRAMADOL HCL [Suspect]
     Active Substance: TRAMADOL HYDROCHLORIDE
     Dosage: 200 MG, 1X/DAY
     Route: 048
     Dates: start: 20200208, end: 20200217
  4. RISPERDAL [Suspect]
     Active Substance: RISPERIDONE
     Dosage: 1 DF, 1X/DAY
     Route: 048
     Dates: start: 20200208, end: 20200217
  5. NOCTAMIDE [Suspect]
     Active Substance: LORMETAZEPAM
     Dosage: 3 DF, 1X/DAY
     Route: 048
     Dates: end: 20200217
  6. ATARAXONE [HYDROXYZINE] [Suspect]
     Active Substance: HYDROXYZINE HYDROCHLORIDE
     Dosage: 3 DF, 1X/DAY
     Route: 048
     Dates: end: 20200217

REACTIONS (2)
  - Faecaloma [Recovering/Resolving]
  - Confusional state [Recovering/Resolving]

NARRATIVE: CASE EVENT DATE: 202002
